FAERS Safety Report 5371135-4 (Version None)
Quarter: 2007Q2

REPORT INFORMATION
  Report Type: 
  Country: None (occurrence: None)
  Receive Date: 20070615
  Receipt Date: 20070327
  Transmission Date: 20071010
  Serious: Yes (Other)
  Sender: FDA-Public Use
  Company Number: 200712128US

PATIENT
  Sex: Female

DRUGS (1)
  1. LANTUS [Suspect]
     Dates: start: 20070101

REACTIONS (1)
  - HYPERGLYCAEMIA [None]
